FAERS Safety Report 5830577-0 (Version None)
Quarter: 2008Q3

REPORT INFORMATION
  Report Type: 
  Country: None (occurrence: None)
  Receive Date: 20080801
  Receipt Date: 20070726
  Transmission Date: 20090109
  Serious: Yes (Death, Hospitalization)
  Sender: FDA-Public Use
  Company Number: US-BRISTOL-MYERS SQUIBB COMPANY-13858907

PATIENT
  Age: 83 Year
  Sex: Male

DRUGS (3)
  1. COUMADIN [Suspect]
  2. PLAVIX [Suspect]
     Route: 048
  3. SOLU-MEDROL [Suspect]

REACTIONS (5)
  - ABASIA [None]
  - FALL [None]
  - HAEMORRHAGE INTRACRANIAL [None]
  - JAUNDICE [None]
  - PLATELET COUNT DECREASED [None]
